FAERS Safety Report 8102782-4 (Version None)
Quarter: 2012Q1

REPORT INFORMATION
  Report Type: 
  Country: None (occurrence: None)
  Receive Date: 20120201
  Receipt Date: 20120119
  Transmission Date: 20120608
  Serious: No
  Sender: FDA-Public Use
  Company Number: JP-UCBSA-050336

PATIENT
  Age: 47 Year
  Sex: Female

DRUGS (7)
  1. PURSENNID [Concomitant]
     Dosage: DAILY DOSE:12MG
     Route: 048
  2. MAGMITT [Concomitant]
     Dosage: DAILY DOSE:990MG
     Route: 048
  3. KEPPRA [Suspect]
     Route: 048
  4. NITRAZEPAM [Concomitant]
     Dosage: DAILY DOSE:10MG
     Route: 048
  5. SEROQUEL [Concomitant]
     Dosage: DAILY DOSE:400MG
     Route: 048
  6. LEXOTAN [Concomitant]
     Dosage: DAILY DOSE:6MG
     Route: 048
  7. ZONISAMIDE [Concomitant]
     Dosage: DAILY DOSE:200MG
     Route: 048

REACTIONS (1)
  - NEUTROPHIL COUNT DECREASED [None]
